FAERS Safety Report 18375913 (Version 1)
Quarter: 2020Q4

REPORT INFORMATION
  Report Type: Spontaneous
  Country: US (occurrence: US)
  Receive Date: 20201013
  Receipt Date: 20201013
  Transmission Date: 20210114
  Serious: No
  Sender: FDA-Public Use
  Company Number: US-SA-2020SA282674

PATIENT

DRUGS (1)
  1. DUPIXENT [Suspect]
     Active Substance: DUPILUMAB
     Dosage: 300 MG, QOW
     Route: 058
     Dates: start: 20191009

REACTIONS (4)
  - Arthropathy [Unknown]
  - Chest discomfort [Recovered/Resolved]
  - Tooth infection [Unknown]
  - Middle insomnia [Recovered/Resolved]

NARRATIVE: CASE EVENT DATE: 202009
